FAERS Safety Report 17426332 (Version 1)
Quarter: 2020Q1

REPORT INFORMATION
  Report Type: Spontaneous
  Country: GR (occurrence: GR)
  Receive Date: 20200217
  Receipt Date: 20200217
  Transmission Date: 20200409
  Serious: Yes (Other)
  Sender: FDA-Public Use
  Company Number: GR-PFIZER INC-2020064148

PATIENT
  Age: 78 Year
  Sex: Female

DRUGS (2)
  1. TAVOR (LORAZEPAM) [Suspect]
     Active Substance: LORAZEPAM
     Indication: DEPRESSED MOOD
  2. TAVOR (LORAZEPAM) [Suspect]
     Active Substance: LORAZEPAM
     Indication: ANXIETY
     Dosage: 1 MG, UNK

REACTIONS (6)
  - Asthenia [Unknown]
  - Intentional product use issue [Unknown]
  - Gait disturbance [Unknown]
  - Carotid artery occlusion [Unknown]
  - Arteriosclerosis [Unknown]
  - Therapeutic product effect decreased [Unknown]
